FAERS Safety Report 15746938 (Version 5)
Quarter: 2024Q2

REPORT INFORMATION
  Report Type: Spontaneous
  Country: JP (occurrence: JP)
  Receive Date: 20181220
  Receipt Date: 20240610
  Transmission Date: 20240716
  Serious: Yes (Death, Hospitalization, Other)
  Sender: FDA-Public Use
  Company Number: PHJP2018JP021061

PATIENT
  Age: 74 Year
  Sex: Female

DRUGS (3)
  1. VOTRIENT [Suspect]
     Active Substance: PAZOPANIB HYDROCHLORIDE
     Indication: Renal cancer metastatic
     Dosage: UNK
     Route: 048
     Dates: start: 201810
  2. NIVOLUMAB [Suspect]
     Active Substance: NIVOLUMAB
     Indication: Renal cancer metastatic
     Dosage: UNK
     Route: 065
     Dates: start: 201709
  3. PREDNISOLONE [Concomitant]
     Active Substance: PREDNISOLONE
     Indication: Autoimmune hepatitis
     Dosage: 40 MG, QD
     Route: 065

REACTIONS (8)
  - Pancreatitis acute [Fatal]
  - Abdominal pain [Fatal]
  - Pancreatic enlargement [Fatal]
  - Fluid retention [Fatal]
  - Multiple organ dysfunction syndrome [Fatal]
  - Respiratory failure [Fatal]
  - Electrolyte imbalance [Fatal]
  - Immune-mediated hepatitis [Fatal]

NARRATIVE: CASE EVENT DATE: 20181201
